FAERS Safety Report 6818809-3 (Version None)
Quarter: 2010Q2

REPORT INFORMATION
  Report Type: 
  Country: None (occurrence: None)
  Receive Date: 20100630
  Receipt Date: 20100622
  Transmission Date: 20101027
  Serious: Yes (Other)
  Sender: FDA-Public Use
  Company Number: 2010EU001937

PATIENT
  Age: 59 Year
  Sex: Male
  Weight: 105 kg

DRUGS (8)
  1. SOLIFENACIN SUCCINATE (VESICARE) [Suspect]
     Indication: URINARY INCONTINENCE
     Dosage: ORAL
     Route: 048
     Dates: end: 20090701
  2. BISOPROLOL FUMARATE [Concomitant]
  3. LANSOPRAZOLE [Concomitant]
  4. PERINDOPRIL ERBUMINE [Concomitant]
  5. RAMIPRIL [Concomitant]
  6. SIMVASTATIN [Concomitant]
  7. WARFARIN SODIUM [Concomitant]
  8. TAMSULOSIN HCL [Concomitant]

REACTIONS (2)
  - DEPRESSION [None]
  - SUICIDAL IDEATION [None]
